FAERS Safety Report 23776963 (Version 1)
Quarter: 2024Q2

REPORT INFORMATION
  Report Type: Spontaneous
  Country: US (occurrence: US)
  Receive Date: 20240424
  Receipt Date: 20240424
  Transmission Date: 20240716
  Serious: No
  Sender: FDA-Public Use
  Company Number: US-BRISTOL-MYERS SQUIBB COMPANY-2024-063756

PATIENT
  Age: 71 Year
  Sex: Female
  Weight: 108.86 kg

DRUGS (1)
  1. ORENCIA [Suspect]
     Active Substance: ABATACEPT
     Indication: Rheumatoid arthritis
     Dosage: DOSE : UNKNOWN;     FREQ : ONCE WEEKLY
     Route: 058
     Dates: start: 20240116

REACTIONS (4)
  - Contusion [Unknown]
  - Device operational issue [Unknown]
  - Device leakage [Unknown]
  - Memory impairment [Unknown]

NARRATIVE: CASE EVENT DATE: 20240415
